FAERS Safety Report 22364022 (Version 1)
Quarter: 2023Q2

REPORT INFORMATION
  Report Type: Spontaneous
  Country: TW (occurrence: TW)
  Receive Date: 20230525
  Receipt Date: 20230525
  Transmission Date: 20230721
  Serious: Yes (Death, Hospitalization, Other)
  Sender: FDA-Public Use
  Company Number: TW-JNJFOC-20230558932

PATIENT
  Sex: Female

DRUGS (2)
  1. YONDELIS [Suspect]
     Active Substance: TRABECTEDIN
     Indication: Sarcoma
     Route: 042
     Dates: end: 20230104
  2. DOXORUBICIN HYDROCHLORIDE [Suspect]
     Active Substance: DOXORUBICIN HYDROCHLORIDE
     Indication: Sarcoma
     Route: 042
     Dates: end: 20230104

REACTIONS (1)
  - Tumour lysis syndrome [Fatal]
